FAERS Safety Report 25750013 (Version 4)
Quarter: 2025Q4

REPORT INFORMATION
  Report Type: Report from Study
  Country: KR (occurrence: KR)
  Receive Date: 20250902
  Receipt Date: 20251009
  Transmission Date: 20260119
  Serious: Yes (Hospitalization, Other)
  Sender: MYLAN
  Company Number: KR-MYLANLABS-2025M1034847

PATIENT
  Age: 65 Year
  Sex: Male
  Weight: 52.1 kg

DRUGS (30)
  1. PRETOMANID [Suspect]
     Active Substance: PRETOMANID
     Indication: Tuberculosis
     Dosage: 200 MILLIGRAM, QD
     Dates: start: 20250207, end: 20250407
  2. PRETOMANID [Suspect]
     Active Substance: PRETOMANID
     Dosage: 200 MILLIGRAM, QD
     Dates: start: 20250411, end: 20250530
  3. PRETOMANID [Suspect]
     Active Substance: PRETOMANID
     Dosage: 200 MILLIGRAM, QD
     Dates: start: 20250604, end: 20250703
  4. PRETOMANID [Suspect]
     Active Substance: PRETOMANID
     Dosage: 200 MILLIGRAM, QD
     Dates: start: 20250721, end: 20250821
  5. PRETOMANID [Suspect]
     Active Substance: PRETOMANID
     Dosage: 200 MILLIGRAM, QD
     Dates: start: 20250825
  6. BEDAQUILINE [Suspect]
     Active Substance: BEDAQUILINE
     Indication: Tuberculosis
     Dosage: 400 MILLIGRAM, QD
     Dates: start: 20250207, end: 20250220
  7. BEDAQUILINE [Suspect]
     Active Substance: BEDAQUILINE
     Dosage: 200 MILLIGRAM, 3XW
     Dates: start: 20250224, end: 20250407
  8. BEDAQUILINE [Suspect]
     Active Substance: BEDAQUILINE
     Dosage: 200 MILLIGRAM, 3XW
     Dates: start: 20250411, end: 20250523
  9. BEDAQUILINE [Suspect]
     Active Substance: BEDAQUILINE
     Dosage: 200 MILLIGRAM, 3XW
     Dates: start: 20250604, end: 20250703
  10. BEDAQUILINE [Suspect]
     Active Substance: BEDAQUILINE
     Dosage: 200 MILLIGRAM, 3XW
     Dates: start: 20250721, end: 20250821
  11. BEDAQUILINE [Suspect]
     Active Substance: BEDAQUILINE
     Dosage: 300 MILLIGRAM
  12. LINEZOLID [Suspect]
     Active Substance: LINEZOLID
     Indication: Tuberculosis
     Dosage: 600 MILLIGRAM, QD
     Dates: start: 20250207, end: 20250407
  13. LINEZOLID [Suspect]
     Active Substance: LINEZOLID
     Dosage: 600 MILLIGRAM, QD
     Dates: start: 20250411, end: 20250417
  14. LINEZOLID [Suspect]
     Active Substance: LINEZOLID
     Dosage: 300 MILLIGRAM, QD
     Dates: start: 20250418, end: 20250530
  15. LINEZOLID [Suspect]
     Active Substance: LINEZOLID
     Dosage: 300 MILLIGRAM, QD
     Dates: start: 20250604, end: 20250703
  16. PYRIDOXINE [Concomitant]
     Active Substance: PYRIDOXINE
     Indication: Prophylaxis
     Dosage: 50 MILLIGRAM, QD
     Dates: start: 20250207, end: 20250703
  17. Trestan [Concomitant]
     Indication: Prophylaxis
     Dosage: 150 MILLIGRAM, BID
     Dates: start: 20250220, end: 20250305
  18. Peniramin [Concomitant]
     Indication: Prophylaxis
     Dosage: 2 MILLIGRAM, BID
     Dates: start: 20250206, end: 20250305
  19. Godex [Concomitant]
     Indication: Prophylaxis
     Dosage: 1 DOSAGE FORM, BID
     Dates: start: 20250425, end: 20250523
  20. Godex [Concomitant]
     Dosage: UNK, BID
     Dates: start: 20250725
  21. PeriOlimel [Concomitant]
     Indication: Prophylaxis
     Dosage: 1 LITER, QD
     Dates: start: 20250409
  22. GABAPENTIN [Concomitant]
     Active Substance: GABAPENTIN
     Indication: Prophylaxis
     Dosage: 300 MILLIGRAM, TID
     Dates: start: 20250620, end: 20250710
  23. FOLIC ACID [Concomitant]
     Active Substance: FOLIC ACID
     Indication: Anaemia
     Dosage: 1 MILLIGRAM, QD
     Dates: start: 20250411
  24. Luzenil [Concomitant]
     Indication: Oesophagogastroscopy
     Dosage: UNK
     Dates: start: 20250409, end: 20250409
  25. Luzenil [Concomitant]
     Indication: Colonoscopy
  26. MIDAZOLAM [Concomitant]
     Active Substance: MIDAZOLAM
     Indication: Oesophagogastroscopy
     Dosage: 4 MILLIGRAM
     Dates: start: 20250409, end: 20250409
  27. MIDAZOLAM [Concomitant]
     Active Substance: MIDAZOLAM
     Indication: Colonoscopy
  28. Freefol [Concomitant]
     Indication: Oesophagogastroscopy
     Dosage: 100 MILLIGRAM
     Dates: start: 20250409, end: 20250409
  29. Freefol [Concomitant]
     Indication: Colonoscopy
  30. Peniramin [Concomitant]
     Indication: Anaemia
     Dosage: UNK
     Dates: start: 20250410, end: 20250410

REACTIONS (4)
  - Anaemia [Recovered/Resolved]
  - Electrocardiogram QT prolonged [Recovered/Resolved]
  - Sinus bradycardia [Recovered/Resolved]
  - Product dose omission in error [Recovered/Resolved]

NARRATIVE: CASE EVENT DATE: 20250221
